FAERS Safety Report 9735410 (Version 2)
Quarter: 2014Q1

REPORT INFORMATION
  Report Type: Spontaneous
  Country: US (occurrence: US)
  Receive Date: 20131206
  Receipt Date: 20140103
  Transmission Date: 20141002
  Serious: No
  Sender: FDA-Public Use
  Company Number: US-009507513-1312USA003262

PATIENT
  Age: 63 Year
  Sex: Female
  Weight: 80.27 kg

DRUGS (6)
  1. OXYTROL FOR WOMEN [Suspect]
     Indication: HYPERTONIC BLADDER
     Dosage: 1 DF, Q4D
     Route: 062
     Dates: start: 20131118, end: 20131121
  2. OXYTROL FOR WOMEN [Suspect]
     Dosage: 1 DF, Q4D
     Route: 062
     Dates: start: 20131122, end: 20131125
  3. LIPITOR [Concomitant]
     Indication: BLOOD CHOLESTEROL INCREASED
     Dosage: UNK, UNKNOWN
  4. ZETONNA [Concomitant]
     Indication: HYPERSENSITIVITY
     Dosage: UNK, UNKNOWN
  5. IMITREX (SUMATRIPTAN SUCCINATE) [Concomitant]
     Indication: HEADACHE
     Dosage: UNK, UNKNOWN
  6. RESTASIS [Concomitant]
     Indication: DRY EYE
     Dosage: UNK, UNKNOWN

REACTIONS (3)
  - Application site erythema [Unknown]
  - Drug ineffective [Unknown]
  - Product quality issue [Unknown]
